FAERS Safety Report 7955991-9 (Version None)
Quarter: 2011Q4

REPORT INFORMATION
  Report Type: 
  Country: None (occurrence: None)
  Receive Date: 20111205
  Receipt Date: 20111128
  Transmission Date: 20120403
  Serious: No
  Sender: FDA-Public Use
  Company Number: US-BIOGENIDEC-2011BI045192

PATIENT
  Age: 53 Year
  Sex: Female

DRUGS (1)
  1. AVONEX [Suspect]
     Indication: MULTIPLE SCLEROSIS
     Route: 030
     Dates: start: 20100325

REACTIONS (7)
  - FATIGUE [None]
  - MUSCULOSKELETAL STIFFNESS [None]
  - ARTHRITIS [None]
  - MIGRAINE [None]
  - HEADACHE [None]
  - PAIN [None]
  - ASTHENIA [None]
